FAERS Safety Report 16971153 (Version 1)
Quarter: 2019Q4

REPORT INFORMATION
  Report Type: Spontaneous
  Country: US (occurrence: US)
  Receive Date: 20191028
  Receipt Date: 20191028
  Transmission Date: 20200122
  Serious: Yes (Hospitalization)
  Sender: FDA-Public Use
  Company Number: None

PATIENT
  Age: 71 Year
  Sex: Male
  Weight: 90 kg

DRUGS (2)
  1. TESTOSTERONE GEL [Suspect]
     Active Substance: TESTOSTERONE
     Indication: BLOOD TESTOSTERONE DECREASED
     Dosage: ?          QUANTITY:1 TUBE;?
     Route: 061
     Dates: start: 20190325, end: 20190912
  2. LOSARTAN. [Concomitant]
     Active Substance: LOSARTAN

REACTIONS (4)
  - Heart rate increased [None]
  - Haemoglobin increased [None]
  - Flushing [None]
  - Blood testosterone increased [None]

NARRATIVE: CASE EVENT DATE: 20190913
